FAERS Safety Report 6124176-3 (Version None)
Quarter: 2009Q1

REPORT INFORMATION
  Report Type: 
  Country: None (occurrence: None)
  Receive Date: 20090317
  Receipt Date: 20090302
  Transmission Date: 20090719
  Serious: No
  Sender: FDA-Public Use
  Company Number: C09-002

PATIENT
  Age: 44 Year
  Sex: Male
  Weight: 86.1834 kg

DRUGS (1)
  1. RIFAMPIN [Suspect]
     Indication: TUBERCULOSIS
     Dosage: 2 X 150 MG CAPS/ORAL
     Route: 048
     Dates: start: 20090227

REACTIONS (3)
  - FATIGUE [None]
  - HEADACHE [None]
  - OROPHARYNGEAL PAIN [None]
